FAERS Safety Report 4680576-X (Version None)
Quarter: 2005Q2

REPORT INFORMATION
  Report Type: 
  Country: None (occurrence: None)
  Receive Date: 20050531
  Receipt Date: 20050207
  Transmission Date: 20051028
  Serious: No
  Sender: FDA-Public Use
  Company Number: WAES 0412USA02710

PATIENT
  Sex: Female
  Weight: 77.1115 kg

DRUGS (6)
  1. ZETIA [Suspect]
     Dosage: PO
     Route: 048
  2. ALLEGRA [Concomitant]
  3. LEVOXYL [Concomitant]
  4. PRAVACHOL [Concomitant]
  5. PREMPRO [Concomitant]
  6. TOPROL-XL [Concomitant]

REACTIONS (3)
  - ABDOMINAL PAIN [None]
  - ARTHRALGIA [None]
  - MYALGIA [None]
